FAERS Safety Report 18037260 (Version 1)
Quarter: 2020Q3

REPORT INFORMATION
  Report Type: Report from Study
  Country: FR (occurrence: FR)
  Receive Date: 20200717
  Receipt Date: 20200717
  Transmission Date: 20201103
  Serious: Yes (Other)
  Sender: FDA-Public Use
  Company Number: FR-JAZZ-2020-FR-006976

PATIENT

DRUGS (1)
  1. DEFITELIO [Suspect]
     Active Substance: DEFIBROTIDE SODIUM
     Indication: PROPHYLAXIS
     Dosage: 25 MILLIGRAM/KILOGRAM, QD
     Route: 042
     Dates: start: 20190903, end: 20191015

REACTIONS (6)
  - Febrile bone marrow aplasia [Recovered/Resolved]
  - Acute graft versus host disease [Unknown]
  - Off label use [Unknown]
  - Haematuria [Recovered/Resolved]
  - Ecchymosis [Recovered/Resolved]
  - Chronic graft versus host disease [Unknown]

NARRATIVE: CASE EVENT DATE: 20190903
